FAERS Safety Report 6595899-7 (Version None)
Quarter: 2010Q1

REPORT INFORMATION
  Report Type: 
  Country: None (occurrence: None)
  Receive Date: 20100223
  Receipt Date: 20100216
  Transmission Date: 20100710
  Serious: Yes (Hospitalization)
  Sender: FDA-Public Use
  Company Number: US-BAYER-200943855NA

PATIENT
  Age: 63 Year
  Sex: Male

DRUGS (3)
  1. NEXAVAR [Suspect]
     Indication: HEPATIC NEOPLASM MALIGNANT
     Dosage: TOTAL DAILY DOSE: 800 MG  UNIT DOSE: 200 MG
     Route: 048
     Dates: start: 20091217
  2. NEXAVAR [Suspect]
     Dosage: TOTAL DAILY DOSE: 800 MG  UNIT DOSE: 200 MG
     Route: 048
     Dates: start: 20100201
  3. AVASTIN [Concomitant]
     Route: 042

REACTIONS (5)
  - DEHYDRATION [None]
  - HERPES ZOSTER [None]
  - NAUSEA [None]
  - SPINAL CORD NEOPLASM [None]
  - VOMITING [None]
